FAERS Safety Report 26028908 (Version 1)
Quarter: 2025Q4

REPORT INFORMATION
  Report Type: Spontaneous
  Country: JP (occurrence: JP)
  Receive Date: 20251112
  Receipt Date: 20251112
  Transmission Date: 20260117
  Serious: Yes (Hospitalization, Other)
  Sender: Vantive US Healthcare
  Company Number: JP-VANTIVE-2025VAN004928

PATIENT
  Age: 70 Year
  Sex: Male

DRUGS (4)
  1. REGUNEAL LCA [Suspect]
     Active Substance: CALCIUM CHLORIDE\DEXTROSE MONOHYDRATE\HYDROCHLORIC ACID\MAGNESIUM CHLORIDE\SODIUM BICARBONATE\SODIUM
     Indication: Renal failure
     Dosage: 5000ML, 2 BAGS
     Route: 033
     Dates: start: 20250409, end: 20251026
  2. WARFARIN [Concomitant]
     Active Substance: WARFARIN
     Indication: Deep vein thrombosis
     Dosage: 3MG ONCE DAILY
     Route: 048
     Dates: end: 20251026
  3. WARFARIN [Concomitant]
     Active Substance: WARFARIN
     Indication: Prophylaxis
  4. ICOSAPENT [Concomitant]
     Active Substance: ICOSAPENT
     Indication: Hyperlipidaemia
     Dosage: 900MG TWICE DAILY (MORNING AND EVENING)
     Route: 048

REACTIONS (1)
  - Cerebral haemorrhage [Recovered/Resolved with Sequelae]

NARRATIVE: CASE EVENT DATE: 20251026
